FAERS Safety Report 7043287-1 (Version None)
Quarter: 2010Q4

REPORT INFORMATION
  Report Type: 
  Country: None (occurrence: None)
  Receive Date: 20101013
  Receipt Date: 20090831
  Transmission Date: 20110411
  Serious: No
  Sender: FDA-Public Use
  Company Number: US-ASTRAZENECA-2009SE10884

PATIENT
  Age: 72 Year
  Sex: Female
  Weight: 83.5 kg

DRUGS (7)
  1. SYMBICORT [Suspect]
     Indication: CHRONIC OBSTRUCTIVE PULMONARY DISEASE
     Dosage: 480 BID
     Route: 055
     Dates: start: 20060101
  2. PLAVIX [Concomitant]
  3. ASPIRIN [Concomitant]
  4. LASIX [Concomitant]
  5. DIOVAN [Concomitant]
  6. C PAP [Concomitant]
  7. O2 [Concomitant]

REACTIONS (1)
  - DYSPNOEA [None]
